FAERS Safety Report 16189852 (Version 1)
Quarter: 2019Q2

REPORT INFORMATION
  Report Type: Spontaneous
  Country: US (occurrence: US)
  Receive Date: 20190412
  Receipt Date: 20190412
  Transmission Date: 20190711
  Serious: No
  Sender: FDA-Public Use
  Company Number: US-BAYER-2019-073556

PATIENT

DRUGS (2)
  1. GADAVIST [Suspect]
     Active Substance: GADOBUTROL
     Indication: HEREDITARY MOTOR AND SENSORY NEUROPATHY
  2. GADAVIST [Suspect]
     Active Substance: GADOBUTROL
     Indication: MAGNETIC RESONANCE NEUROGRAPHY
     Dosage: UNK, ONCE
     Route: 042
     Dates: start: 20190408, end: 20190408

REACTIONS (1)
  - Nausea [None]
